FAERS Safety Report 5859052-4 (Version None)
Quarter: 2008Q3

REPORT INFORMATION
  Report Type: 
  Country: None (occurrence: None)
  Receive Date: 20080825
  Receipt Date: 20080808
  Transmission Date: 20090109
  Serious: Yes (Disabling)
  Sender: FDA-Public Use
  Company Number: 8035977

PATIENT
  Age: 63 Year
  Sex: Female

DRUGS (9)
  1. PREDNISOLONE [Suspect]
     Indication: RHEUMATOID ARTHRITIS
     Dosage: 2.5 MG 1/D PO
     Route: 048
     Dates: start: 20041125, end: 20070101
  2. PREDNISOLONE [Suspect]
     Indication: RHEUMATOID ARTHRITIS
     Dosage: PO
     Route: 048
     Dates: start: 20070101
  3. AMLODIPINE [Suspect]
     Indication: HYPERTENSION
     Dosage: 5 MG 1/D ODT
     Dates: start: 20071127, end: 20080105
  4. CANDESARTAN [Concomitant]
  5. CYANOCOBALAMIN [Concomitant]
  6. FUROSEMIDE [Concomitant]
  7. INDAPAMIDE [Concomitant]
  8. OMEPRAZOLE [Concomitant]
  9. PREGADAY [Concomitant]

REACTIONS (7)
  - ANXIETY [None]
  - DEPRESSED MOOD [None]
  - DEPRESSION [None]
  - FEELING COLD [None]
  - SUICIDAL IDEATION [None]
  - TINNITUS [None]
  - TREMOR [None]
